FAERS Safety Report 5811904-7 (Version None)
Quarter: 2008Q3

REPORT INFORMATION
  Report Type: 
  Country: None (occurrence: None)
  Receive Date: 20080716
  Receipt Date: 20080704
  Transmission Date: 20090109
  Serious: Yes (Death)
  Sender: FDA-Public Use
  Company Number: SE-ROCHE-562482

PATIENT
  Age: 36 Year
  Sex: Male

DRUGS (8)
  1. IKTORIVIL [Suspect]
     Indication: PAIN
     Route: 065
  2. SOMADRIL [Suspect]
     Indication: PAIN
     Dosage: DRUG REPORTED AS KARISOPRODOL.
     Route: 065
  3. TRAMADOL HCL [Suspect]
     Indication: PAIN
     Dosage: PT RECEIVED 200000MG TRAMADOL WHICH IS 11 TABLETS A 50 MG/DAY FOR A YEAR
     Route: 065
  4. IMOVANE [Suspect]
     Indication: DRUG USE FOR UNKNOWN INDICATION
     Route: 065
  5. XANOR [Suspect]
     Indication: DRUG USE FOR UNKNOWN INDICATION
     Route: 065
  6. DEXOFEN [Suspect]
     Indication: DRUG USE FOR UNKNOWN INDICATION
     Route: 065
  7. LYRICA [Concomitant]
  8. ALVEDON [Concomitant]

REACTIONS (5)
  - DEPRESSED LEVEL OF CONSCIOUSNESS [None]
  - DEPRESSION [None]
  - HYPOAESTHESIA [None]
  - POISONING [None]
  - UNEVALUABLE EVENT [None]
